FAERS Safety Report 7153586-0 (Version None)
Quarter: 2010Q4

REPORT INFORMATION
  Report Type: 
  Country: None (occurrence: None)
  Receive Date: 20101130
  Receipt Date: 20101115
  Transmission Date: 20110411
  Serious: Yes (Hospitalization, Other)
  Sender: FDA-Public Use
  Company Number: 2010SP060078

PATIENT
  Age: 51 Year
  Sex: Female
  Weight: 65 kg

DRUGS (2)
  1. MIRCETTE [Suspect]
     Indication: CONTRACEPTION
     Dosage: 1 DF; ; PO
     Route: 048
     Dates: start: 20100815, end: 20101108
  2. CITALOPRAM (CITALOPRAM) [Suspect]
     Indication: DEPRESSION
     Dosage: 20 MG; QD; PO
     Route: 048
     Dates: start: 20101109, end: 20101110

REACTIONS (4)
  - AGITATION [None]
  - DELUSION [None]
  - DEPRESSION [None]
  - SUICIDAL IDEATION [None]
